FAERS Safety Report 10369242 (Version 1)
Quarter: 2014Q3

REPORT INFORMATION
  Report Type: Spontaneous
  Country: DK (occurrence: DK)
  Receive Date: 20140807
  Receipt Date: 20140807
  Transmission Date: 20150326
  Serious: Yes (Life-Threatening, Hospitalization)
  Sender: FDA-Public Use
  Company Number: PHHY2014DK095860

PATIENT
  Sex: Female

DRUGS (3)
  1. PARACETAMOL [Suspect]
     Active Substance: ACETAMINOPHEN
     Dosage: 15-20 DF
     Route: 048
  2. ALCOHOL. [Concomitant]
     Active Substance: ALCOHOL
  3. BRUFEN [Suspect]
     Active Substance: IBUPROFEN
     Dosage: 5-6 DF

REACTIONS (2)
  - Hepatic failure [Recovered/Resolved]
  - Suicide attempt [Recovered/Resolved]
